FAERS Safety Report 15809622 (Version 1)
Quarter: 2019Q1

REPORT INFORMATION
  Report Type: Spontaneous
  Country: US (occurrence: US)
  Receive Date: 20190111
  Receipt Date: 20190111
  Transmission Date: 20190417
  Serious: No
  Sender: FDA-Public Use
  Company Number: US-ROCHE-2037648

PATIENT
  Sex: Female
  Weight: 96.25 kg

DRUGS (6)
  1. OLOPATADINE. [Concomitant]
     Active Substance: OLOPATADINE
     Dosage: ONGOING
     Route: 065
     Dates: start: 20171201
  2. CLARITIN [Concomitant]
     Active Substance: LORATADINE
     Dosage: ONGOING
     Route: 065
  3. FLONASE [Concomitant]
     Active Substance: FLUTICASONE PROPIONATE
     Dosage: ONGOING
     Route: 065
  4. SINGULAIR [Concomitant]
     Active Substance: MONTELUKAST SODIUM
     Dosage: ONGOING
     Route: 065
  5. KETOTIFEN FUMARATE. [Concomitant]
     Active Substance: KETOTIFEN FUMARATE
     Dosage: ONGOING: NO
     Route: 065
     Dates: end: 20171201
  6. RITUXAN [Suspect]
     Active Substance: RITUXIMAB
     Indication: PRODUCT USED FOR UNKNOWN INDICATION
     Dosage: ONGOING
     Route: 065
     Dates: start: 20170505

REACTIONS (1)
  - Hypersensitivity [Not Recovered/Not Resolved]
